FAERS Safety Report 9886473 (Version 1)
Quarter: 2014Q1

REPORT INFORMATION
  Report Type: Spontaneous
  Country: US (occurrence: US)
  Receive Date: 20140210
  Receipt Date: 20140210
  Transmission Date: 20141002
  Serious: No
  Sender: FDA-Public Use
  Company Number: US-TEVA-460590USA

PATIENT
  Sex: Male

DRUGS (2)
  1. QVAR [Suspect]
     Dosage: 160 MILLIGRAM DAILY;
     Route: 055
  2. TUDORZA PRESSAIR [Suspect]
     Indication: CHRONIC OBSTRUCTIVE PULMONARY DISEASE
     Dosage: 800 MICROGRAM DAILY;
     Route: 055
     Dates: start: 20140117

REACTIONS (1)
  - Dizziness [Not Recovered/Not Resolved]
